FAERS Safety Report 10880637 (Version 1)
Quarter: 2015Q1

REPORT INFORMATION
  Report Type: Report from Study
  Country: US (occurrence: US)
  Receive Date: 20150303
  Receipt Date: 20150303
  Transmission Date: 20150721
  Serious: Yes (Other)
  Sender: FDA-Public Use
  Company Number: US-BEH-2015049123

PATIENT
  Age: 33 Year
  Sex: Female

DRUGS (1)
  1. BERINERT [Suspect]
     Active Substance: HUMAN C1-ESTERASE INHIBITOR

REACTIONS (5)
  - Hereditary angioedema [Unknown]
  - Nervousness [Unknown]
  - Swelling [Unknown]
  - Local swelling [Unknown]
  - Stress [Unknown]

NARRATIVE: CASE EVENT DATE: 20150218
